FAERS Safety Report 6703423-0 (Version None)
Quarter: 2010Q2

REPORT INFORMATION
  Report Type: 
  Country: None (occurrence: None)
  Receive Date: 20100430
  Receipt Date: 20100422
  Transmission Date: 20101027
  Serious: Yes (Disabling)
  Sender: FDA-Public Use
  Company Number: US-ASTRAZENECA-2010SE18129

PATIENT
  Age: 67 Year
  Sex: Female

DRUGS (16)
  1. SEROQUEL XR [Suspect]
     Route: 048
     Dates: start: 20100412, end: 20100420
  2. BUSPIRONE HCL [Concomitant]
     Route: 048
  3. K-DUR [Concomitant]
     Route: 048
  4. PRAVOCOL [Concomitant]
     Route: 048
  5. SINEMET CR [Concomitant]
     Route: 048
  6. METOPROLOL SUCCINATE [Concomitant]
     Indication: HYPERTENSION
     Route: 048
  7. SINGULAIR [Concomitant]
     Indication: MULTIPLE ALLERGIES
     Route: 048
  8. NIASPAN [Concomitant]
     Indication: BLOOD CHOLESTEROL INCREASED
     Route: 048
  9. ADVAIR DISKUS 100/50 [Concomitant]
     Indication: ASTHMA
     Dosage: 500/50 QD
     Route: 055
  10. VENLASAXINE HCL [Concomitant]
     Route: 048
  11. PREDNISONE [Concomitant]
     Route: 048
  12. TYLENOL (CAPLET) [Concomitant]
     Route: 048
  13. NAPROSYN [Concomitant]
     Route: 048
  14. ACTONEL [Concomitant]
  15. ALBUTEROL SULFATE AUTOHALER [Concomitant]
     Dosage: 1 NEB 4 TIMES PER DAY PRN
  16. TRAZODONE HCL [Concomitant]
     Dosage: 50 MG 1-3 TABS BY MOUTH PRN SLEEP
     Route: 048

REACTIONS (3)
  - AMNESIA [None]
  - COGNITIVE DISORDER [None]
  - DRUG DOSE OMISSION [None]
